FAERS Safety Report 8926459 (Version 1)
Quarter: 2012Q4

REPORT INFORMATION
  Report Type: 
  Country: ZA (occurrence: ZA)
  Receive Date: 20121127
  Receipt Date: 20121127
  Transmission Date: 20130627
  Serious: Yes (Hospitalization, Other)
  Sender: FDA-Public Use
  Company Number: ZA-ELI_LILLY_AND_COMPANY-ZA201211005719

PATIENT
  Sex: Male

DRUGS (2)
  1. HUMALOG 25% LISPRO, 75% NPL [Suspect]
     Indication: TYPE 2 DIABETES MELLITUS
     Dosage: 10 u, each morning
     Route: 058
     Dates: start: 201111
  2. HUMALOG 25% LISPRO, 75% NPL [Suspect]
     Dosage: 5 u, each evening
     Route: 058
     Dates: start: 201111

REACTIONS (2)
  - Dyspnoea [Unknown]
  - Dialysis [Unknown]
